FAERS Safety Report 4596570-3 (Version None)
Quarter: 2005Q1

REPORT INFORMATION
  Report Type: 
  Country: None (occurrence: None)
  Receive Date: 20050228
  Receipt Date: 20040624
  Transmission Date: 20050727
  Serious: No
  Sender: FDA-Public Use
  Company Number: 8262

PATIENT
  Age: 72 Year
  Sex: Female

DRUGS (10)
  1. METHOTREXATE [Suspect]
     Indication: RHEUMATOID ARTHRITIS
     Dosage: 2.5 MG WEEKLY, PO
     Route: 048
     Dates: start: 20020201, end: 20031201
  2. INFLIXIMAB [Suspect]
     Indication: RHEUMATOID ARTHRITIS
     Dosage: 300 MG OTH, IV
     Route: 042
     Dates: start: 20020214, end: 20031217
  3. LEFLUNOMIDE [Concomitant]
  4. PREDNISOLONE [Concomitant]
  5. PIOGLITAZONE [Concomitant]
  6. GLICLAZIDE [Concomitant]
  7. DIHYDROCODEINE [Concomitant]
  8. TEMAZEPAM [Concomitant]
  9. ACETAMINOPHEN [Concomitant]
  10. NABUMETONE [Concomitant]

REACTIONS (2)
  - DRUG INTERACTION [None]
  - LEUKOPENIA [None]
